FAERS Safety Report 4478244-2 (Version None)
Quarter: 2004Q3

REPORT INFORMATION
  Report Type: 
  Country: None (occurrence: None)
  Receive Date: 20040923
  Receipt Date: 20040726
  Transmission Date: 20050211
  Serious: No
  Sender: FDA-Public Use
  Company Number: USA040773706

PATIENT
  Sex: Female

DRUGS (11)
  1. FORTEO [Suspect]
     Indication: OSTEOPOROSIS
     Dates: start: 20040707
  2. NORVASC [Concomitant]
  3. SLOW-K [Concomitant]
  4. BENADRYL [Concomitant]
  5. NEURONTIN [Concomitant]
  6. ORTHOTEX PLUS [Concomitant]
  7. KLONOPIN [Concomitant]
  8. CELEXA [Concomitant]
  9. VITAMIN B12 FOR INJECTION (CYANOCOBALAMIN) [Concomitant]
  10. LASIX [Concomitant]
  11. ALLEGRA [Concomitant]

REACTIONS (4)
  - ANAEMIA [None]
  - PAIN EXACERBATED [None]
  - PITTING OEDEMA [None]
  - THYROID FUNCTION TEST ABNORMAL [None]
